FAERS Safety Report 24353152 (Version 3)
Quarter: 2024Q4

REPORT INFORMATION
  Report Type: Spontaneous
  Country: US (occurrence: US)
  Receive Date: 20240923
  Receipt Date: 20241126
  Transmission Date: 20250115
  Serious: Yes (Other)
  Sender: PFIZER
  Company Number: US-PFIZER INC-PV202400121851

PATIENT
  Age: 28 Year

DRUGS (3)
  1. SULFASALAZINE [Suspect]
     Active Substance: SULFASALAZINE
     Dosage: 2000 MG, DAILY
  2. COSENTYX [Suspect]
     Active Substance: SECUKINUMAB
     Dosage: UNK
     Dates: start: 2023
  3. IBUPROFEN [Suspect]
     Active Substance: IBUPROFEN
     Dosage: 1600 MG, DAILY

REACTIONS (10)
  - Condition aggravated [Unknown]
  - Psoriatic arthropathy [Unknown]
  - Bursitis [Unknown]
  - Infrapatellar fat pad inflammation [Unknown]
  - Dactylitis [Unknown]
  - Hypermobility syndrome [Unknown]
  - Tendonitis [Unknown]
  - Tendon disorder [Unknown]
  - Tenosynovitis [Unknown]
  - Foot deformity [Unknown]

NARRATIVE: CASE EVENT DATE: 20230101
